FAERS Safety Report 9931009 (Version 1)
Quarter: 2014Q1

REPORT INFORMATION
  Report Type: Spontaneous
  Country: US (occurrence: US)
  Receive Date: 20140227
  Receipt Date: 20140227
  Transmission Date: 20141002
  Serious: Yes (Hospitalization, Other)
  Sender: FDA-Public Use
  Company Number: PHEH2014US003911

PATIENT
  Sex: Female

DRUGS (6)
  1. DIOVAN [Suspect]
     Indication: BLOOD PRESSURE INCREASED
     Dosage: UNK UKN, UNK
  2. LISINOPRIL [Concomitant]
     Indication: BLOOD PRESSURE ABNORMAL
     Dosage: UNK UKN, UNK
  3. HYDROCHLOROTHIAZIDE [Concomitant]
     Indication: BLOOD PRESSURE ABNORMAL
     Dosage: UNK UKN, UNK
  4. TOPOL [Concomitant]
     Dosage: UNK UKN, UNK
  5. ASPIRIN [Concomitant]
  6. AMLODIPINE [Concomitant]
     Dosage: UNK UKN, UNK

REACTIONS (4)
  - Renal disorder [Recovered/Resolved]
  - Dehydration [Unknown]
  - Clostridium difficile infection [Unknown]
  - Abdominal pain upper [Unknown]
